FAERS Safety Report 18736848 (Version 1)
Quarter: 2021Q1

REPORT INFORMATION
  Report Type: Report from Study
  Country: ES (occurrence: ES)
  Receive Date: 20210113
  Receipt Date: 20210113
  Transmission Date: 20210419
  Serious: Yes (Death, Other)
  Sender: FDA-Public Use
  Company Number: ES-TEVA-2021-ES-1868370

PATIENT
  Age: 54 Year
  Sex: Male

DRUGS (5)
  1. HIDROXICLOROQUINA (2143A) [Suspect]
     Active Substance: HYDROXYCHLOROQUINE
     Indication: COVID-19
     Route: 048
     Dates: start: 20200329, end: 20200402
  2. KALETRA [Suspect]
     Active Substance: LOPINAVIR\RITONAVIR
     Indication: COVID-19
     Dates: start: 20200329, end: 20200409
  3. CEFTRIAXONA (501A) [Suspect]
     Active Substance: CEFTRIAXONE
     Dates: start: 20200329, end: 20200409
  4. CLARITROMICINA (967A) [Suspect]
     Active Substance: CLARITHROMYCIN
     Dosage: 500MG
     Dates: start: 20200329, end: 20200406
  5. TOCILIZUMAB (8289A) [Suspect]
     Active Substance: TOCILIZUMAB
     Indication: COVID-19
     Dosage: 600MG
     Route: 042
     Dates: start: 20200329, end: 20200329

REACTIONS (1)
  - Long QT syndrome [Unknown]

NARRATIVE: CASE EVENT DATE: 20200404
